FAERS Safety Report 26057629 (Version 1)
Quarter: 2025Q4

REPORT INFORMATION
  Report Type: Spontaneous
  Country: US (occurrence: None)
  Receive Date: 20251118
  Receipt Date: 20251118
  Transmission Date: 20260118
  Serious: No
  Sender: UCB
  Company Number: US-UCBSA-2025035650

PATIENT
  Age: 55 Year

DRUGS (1)
  1. VIMPAT [Suspect]
     Active Substance: LACOSAMIDE
     Indication: Seizure
     Dosage: 200 MG 1 AND ONE-HALF TABLETS EVERY MORNING + 1 AND ONE-HALF TABLETS IN THE EVENING

REACTIONS (3)
  - Cough [Unknown]
  - Somnolence [Unknown]
  - Wrong technique in product usage process [Unknown]
